FAERS Safety Report 8499430-0 (Version None)
Quarter: 2012Q3

REPORT INFORMATION
  Report Type: 
  Country: None (occurrence: None)
  Receive Date: 20120710
  Receipt Date: 20120630
  Transmission Date: 20120928
  Serious: Yes (Other)
  Sender: FDA-Public Use
  Company Number: US-JNJFOC-20120606348

PATIENT
  Age: 59 Year
  Sex: Female

DRUGS (2)
  1. REMICADE [Suspect]
     Indication: PRODUCT USED FOR UNKNOWN INDICATION
     Dosage: LATEST DOSE
     Route: 042
     Dates: start: 20120215, end: 20120101
  2. REMICADE [Suspect]
     Dosage: 5 MG/KG
     Route: 042
     Dates: start: 20040203

REACTIONS (1)
  - LYMPHOMA [None]
